FAERS Safety Report 22525291 (Version 1)
Quarter: 2023Q2

REPORT INFORMATION
  Report Type: Spontaneous
  Country: FR (occurrence: FR)
  Receive Date: 20230606
  Receipt Date: 20230606
  Transmission Date: 20230722
  Serious: Yes (Hospitalization, Other)
  Sender: FDA-Public Use
  Company Number: None

PATIENT
  Age: 77 Year
  Sex: Female

DRUGS (4)
  1. IRBESARTAN [Suspect]
     Active Substance: IRBESARTAN
     Indication: Hypertension
     Dosage: 300 MG, QD
     Route: 048
     Dates: start: 202207, end: 20230424
  2. L TRYPTOPHAN [Concomitant]
     Dosage: UNK
     Route: 048
  3. MAGNEVIE B6 [Concomitant]
     Dosage: 100 MG/10 MG
     Route: 048
  4. ZINC ACETATE DIHYDRATE [Concomitant]
     Dosage: UNK
     Route: 048

REACTIONS (1)
  - Agranulocytosis [Recovered/Resolved]
